FAERS Safety Report 4160728 (Version 2)
Quarter: 2013Q1

REPORT INFORMATION
  Report Type: Spontaneous
  Country: GB (occurrence: GB)
  Receive Date: 20040617
  Receipt Date: 20130320
  Transmission Date: 20140127
  Serious: Yes (Life-Threatening, Hospitalization)
  Sender: FDA-Public Use
  Company Number: GB-JNJFOC-20040603298

PATIENT
  Age: 7 Year
  Sex: Female
  Weight: 21.7 kg

DRUGS (3)
  1. IBUPROFEN [Suspect]
     Indication: TONSILLITIS
     Route: 048
     Dates: start: 10040518, end: 20040519
  2. IBUPROFEN [Suspect]
     Indication: PYREXIA
     Route: 048
     Dates: start: 10040518, end: 20040519
  3. PENICILLIN V [Concomitant]
     Route: 048
     Dates: start: 20040518, end: 20040519

REACTIONS (2)
  - Renal failure acute [Recovering/Resolving]
  - Tubulointerstitial nephritis [Recovering/Resolving]
